FAERS Safety Report 22090292 (Version 2)
Quarter: 2023Q1

REPORT INFORMATION
  Report Type: Spontaneous
  Country: US (occurrence: US)
  Receive Date: 20230313
  Receipt Date: 20230321
  Transmission Date: 20230418
  Serious: No
  Sender: FDA-Public Use
  Company Number: US-BRISTOL-MYERS SQUIBB COMPANY-2023-035797

PATIENT
  Age: 47 Year
  Sex: Female
  Weight: 128.55 kg

DRUGS (2)
  1. ELIQUIS [Suspect]
     Active Substance: APIXABAN
     Indication: Pulmonary embolism
     Dosage: FOR ONE WEEK
     Route: 048
     Dates: start: 201911
  2. ELIQUIS [Suspect]
     Active Substance: APIXABAN
     Dosage: FOR 6 MONTHS
     Route: 048

REACTIONS (1)
  - Urticaria [Unknown]
